FAERS Safety Report 5182674-3 (Version None)
Quarter: 2006Q4

REPORT INFORMATION
  Report Type: 
  Country: None (occurrence: None)
  Receive Date: 20061220
  Receipt Date: 20061128
  Transmission Date: 20070319
  Serious: Yes (Death, Life-Threatening)
  Sender: FDA-Public Use
  Company Number: JP-BRISTOL-MYERS SQUIBB COMPANY-13601364

PATIENT
  Age: 61 Year
  Sex: Male

DRUGS (7)
  1. MEVALOTIN [Suspect]
     Indication: HYPERLIPIDAEMIA
     Route: 048
     Dates: start: 20060309, end: 20061124
  2. OLMETEC [Concomitant]
     Indication: HYPERTENSION
     Route: 048
     Dates: start: 20040807, end: 20061124
  3. ZANTAC [Concomitant]
     Indication: GASTRIC ULCER
     Route: 048
     Dates: start: 20040529, end: 20061124
  4. NORVASC [Concomitant]
     Indication: HYPERTENSION
     Route: 048
     Dates: start: 20020209, end: 20061124
  5. ETIZOLAM [Concomitant]
     Indication: DYSTHYMIC DISORDER
     Route: 048
     Dates: start: 20011124, end: 20061124
  6. NICHOLASE [Concomitant]
     Indication: NASOPHARYNGITIS
     Route: 048
     Dates: start: 20061013
  7. HUSCODE [Concomitant]
     Indication: NASOPHARYNGITIS
     Route: 048
     Dates: start: 20061113

REACTIONS (2)
  - ACUTE RESPIRATORY DISTRESS SYNDROME [None]
  - INTERSTITIAL LUNG DISEASE [None]
